FAERS Safety Report 10917743 (Version 1)
Quarter: 2015Q1

REPORT INFORMATION
  Report Type: Spontaneous
  Country: US (occurrence: None)
  Receive Date: 20150311
  Receipt Date: 20150311
  Transmission Date: 20150721
  Serious: No
  Sender: FDA-Public Use
  Company Number: 1210513-2015-00069

PATIENT
  Sex: Male

DRUGS (1)
  1. SHEFFIELD TRIPLE ANTIBIOTIC [Suspect]
     Active Substance: BACITRACIN ZINC\NEOMYCIN SULFATE\POLYMYXIN B SULFATE
     Indication: ANTIBIOTIC THERAPY
     Route: 061

REACTIONS (2)
  - Rash erythematous [None]
  - Rash [None]

NARRATIVE: CASE EVENT DATE: 20121009
